FAERS Safety Report 5472335-5 (Version None)
Quarter: 2007Q3

REPORT INFORMATION
  Report Type: 
  Country: None (occurrence: None)
  Receive Date: 20070929
  Receipt Date: 20070920
  Transmission Date: 20080115
  Serious: Yes (Hospitalization, Other)
  Sender: FDA-Public Use
  Company Number: PHBS2007JP04334

PATIENT
  Age: 55 Year
  Sex: Male

DRUGS (6)
  1. SIMULECT [Suspect]
     Indication: RENAL TRANSPLANT
     Dosage: 20 MG, ONCE/SINGLE
     Dates: start: 20060315, end: 20060315
  2. SIMULECT [Suspect]
     Dosage: 20 MG, ONCE/SINGLE
     Dates: start: 20060319, end: 20060319
  3. NEORAL [Suspect]
     Indication: RENAL TRANSPLANT
     Dosage: UNK, UNK
     Route: 048
     Dates: start: 20060314
  4. CELLCEPT [Suspect]
     Indication: RENAL TRANSPLANT
     Dosage: 2 G/D
     Route: 048
     Dates: start: 20060215
  5. MEDROL [Suspect]
     Indication: RENAL TRANSPLANT
     Dosage: UNK, UNK
     Route: 048
     Dates: start: 20060215
  6. RITUXAN [Suspect]
     Indication: RENAL TRANSPLANT
     Route: 042
     Dates: start: 20060215

REACTIONS (6)
  - ANAEMIA [None]
  - CYTOMEGALOVIRUS ANTIGEN POSITIVE [None]
  - DUODENAL ULCER HAEMORRHAGE [None]
  - FAECES DISCOLOURED [None]
  - GASTRECTOMY [None]
  - PYLORECTOMY [None]
